FAERS Safety Report 9334610 (Version 1)
Quarter: 2013Q2

REPORT INFORMATION
  Report Type: Spontaneous
  Country: DE (occurrence: DE)
  Receive Date: 20130606
  Receipt Date: 20130606
  Transmission Date: 20140414
  Serious: Yes (Death, Congenital Anomaly)
  Sender: FDA-Public Use
  Company Number: DE-MYLANLABS-2013S1011364

PATIENT
  Sex: Male
  Weight: .4 kg

DRUGS (2)
  1. AMITRIPTYLINE [Suspect]
     Route: 064
     Dates: start: 20120115, end: 20120301
  2. FOLSAN [Concomitant]
     Route: 064
     Dates: start: 20120115, end: 20120623

REACTIONS (9)
  - Renal aplasia [Fatal]
  - Adactyly [Not Recovered/Not Resolved]
  - Cataract [Not Recovered/Not Resolved]
  - Limb reduction defect [Not Recovered/Not Resolved]
  - Dysmorphism [Not Recovered/Not Resolved]
  - Pulmonary hypoplasia [Not Recovered/Not Resolved]
  - Exposure during pregnancy [Not Recovered/Not Resolved]
  - Oligohydramnios [Not Recovered/Not Resolved]
  - Cardiac hypertrophy [Not Recovered/Not Resolved]
